FAERS Safety Report 10275770 (Version 2)
Quarter: 2015Q3

REPORT INFORMATION
  Report Type: Report from Study
  Country: US (occurrence: US)
  Receive Date: 20140703
  Receipt Date: 20150811
  Transmission Date: 20151125
  Serious: Yes (Life-Threatening, Other)
  Sender: FDA-Public Use
  Company Number: US-ALEXION PHARMACEUTICALS INC.-A201305301

PATIENT

DRUGS (4)
  1. SOLIRIS [Suspect]
     Active Substance: ECULIZUMAB
     Indication: HAEMOLYTIC URAEMIC SYNDROME
     Dosage: UNK
     Route: 042
     Dates: start: 20130928
  2. NICARPINE [Suspect]
     Active Substance: NICARDIPINE
     Dosage: 4 MG/KG, UNK
  3. ANTIBIOTICS [Concomitant]
     Active Substance: UNSPECIFIED INGREDIENT
     Indication: PROPHYLAXIS
     Route: 065
  4. NICARPINE [Suspect]
     Active Substance: NICARDIPINE
     Indication: BLOOD PRESSURE INCREASED
     Dosage: 1 MG/KG, UNK
     Route: 065

REACTIONS (8)
  - Pharyngeal oedema [Unknown]
  - Respiratory tract oedema [Unknown]
  - Haemoglobin decreased [Recovered/Resolved]
  - Dyspnoea [Unknown]
  - Blood pressure increased [Recovered/Resolved]
  - Agitation [Unknown]
  - Blood lactate dehydrogenase increased [Recovering/Resolving]
  - Laryngospasm [Unknown]

NARRATIVE: CASE EVENT DATE: 20131009
